FAERS Safety Report 11114738 (Version 1)
Quarter: 2015Q2

REPORT INFORMATION
  Report Type: Spontaneous
  Country: AU (occurrence: None)
  Receive Date: 20150513
  Receipt Date: 20150513
  Transmission Date: 20150821
  Serious: Yes (Hospitalization, Other)
  Sender: FDA-Public Use
  Company Number: 2015-11249

PATIENT
  Sex: Female

DRUGS (1)
  1. EYLEA [Suspect]
     Active Substance: AFLIBERCEPT
     Indication: NEOVASCULAR AGE-RELATED MACULAR DEGENERATION
     Dosage: 2MG, Q6WK, INTRAOCULAR
     Route: 031

REACTIONS (7)
  - Product use issue [None]
  - Fall [None]
  - Fractured coccyx [None]
  - Iris disorder [None]
  - Head injury [None]
  - Vitreous floaters [None]
  - Ligament sprain [None]
